FAERS Safety Report 12612270 (Version 3)
Quarter: 2016Q4

REPORT INFORMATION
  Report Type: Spontaneous
  Country: RS (occurrence: RS)
  Receive Date: 20160801
  Receipt Date: 20161013
  Transmission Date: 20170207
  Serious: Yes (Hospitalization, Other)
  Sender: FDA-Public Use
  Company Number: RS-PFIZER INC-2016368685

PATIENT
  Age: 60 Year
  Sex: Male

DRUGS (1)
  1. METHYLPREDNISOLONE SODIUM SUCCINATE. [Suspect]
     Active Substance: METHYLPREDNISOLONE SODIUM SUCCINATE
     Indication: B-CELL LYMPHOMA
     Dosage: 1 MG/KG, UNK
     Dates: start: 20131229

REACTIONS (3)
  - Empyema [Recovered/Resolved]
  - Pleural infection bacterial [Recovered/Resolved]
  - Gastroenteritis salmonella [Recovered/Resolved]
